APPROVED DRUG PRODUCT: BROMPHENIRAMINE MALEATE
Active Ingredient: BROMPHENIRAMINE MALEATE
Strength: 4MG
Dosage Form/Route: TABLET;ORAL
Application: A086187 | Product #001
Applicant: NEXGEN PHARMA INC
Approved: Approved Prior to Jan 1, 1982 | RLD: No | RS: No | Type: DISCN